FAERS Safety Report 15547132 (Version 1)
Quarter: 2018Q4

REPORT INFORMATION
  Report Type: Spontaneous
  Country: US (occurrence: US)
  Receive Date: 20181024
  Receipt Date: 20181024
  Transmission Date: 20190205
  Serious: Yes (Hospitalization)
  Sender: FDA-Public Use
  Company Number: None

PATIENT
  Age: 50 Year
  Sex: Male

DRUGS (3)
  1. STELARA [Suspect]
     Active Substance: USTEKINUMAB
     Indication: CROHN^S DISEASE
     Dosage: 90 MG EVERY 8 WEEKS SUBCUTANEOUS
     Route: 058
     Dates: start: 20180703
  2. BUDESONIDE TAB ER 9MG [Concomitant]
  3. SMZ/TMP TAB 800-160 [Concomitant]

REACTIONS (2)
  - Pain [None]
  - Condition aggravated [None]

NARRATIVE: CASE EVENT DATE: 20181009
